FAERS Safety Report 10751486 (Version 1)
Quarter: 2015Q1

REPORT INFORMATION
  Report Type: Spontaneous
  Country: AT (occurrence: None)
  Receive Date: 20150128
  Receipt Date: 20150128
  Transmission Date: 20150721
  Serious: Yes (Other)
  Sender: FDA-Public Use
  Company Number: FK201500335

PATIENT
  Age: 16 Year
  Sex: Male

DRUGS (8)
  1. CEFTAZIDIME (CEFTAZIDIME) [Concomitant]
     Active Substance: CEFTAZIDIME
  2. GRANULOCYATE COLONY STIMULATING FACTOR (GRANULOCYTE COLONY STIMULATING FACTOR) [Concomitant]
  3. LEVETIRACETAM (LEVETIRACETAM) [Suspect]
     Active Substance: LEVETIRACETAM
     Indication: EPILEPSY
  4. TEICOPLANIN (TEICOPLANIN) [Concomitant]
     Active Substance: TEICOPLANIN
  5. TOBRAMYCIN  (TOBRAMYCIN) [Concomitant]
  6. ETOPOSIDE (ETOPOSIDE) [Concomitant]
     Active Substance: ETOPOSIDE
  7. MEROPENEM (MEROPENEM) [Concomitant]
     Active Substance: MEROPENEM
  8. ATG RABIT (ANTITHYMOCYTE IMMUNOGLOBULIN (RABIT)) [Concomitant]

REACTIONS (2)
  - Bone marrow failure [None]
  - Transplant failure [None]
